FAERS Safety Report 7530027-2 (Version None)
Quarter: 2011Q2

REPORT INFORMATION
  Report Type: 
  Country: None (occurrence: None)
  Receive Date: 20110607
  Receipt Date: 20110524
  Transmission Date: 20111010
  Serious: Yes (Hospitalization)
  Sender: FDA-Public Use
  Company Number: PHHY2011FR45273

PATIENT
  Sex: Female

DRUGS (16)
  1. LASIX [Suspect]
     Dosage: 20 MG, UNK
     Route: 048
  2. POTASSIUM CHLORIDE [Suspect]
     Dosage: 1 DF, QD
     Route: 048
     Dates: start: 20110325
  3. PANTOPRAZOLE SODIUM [Concomitant]
     Dosage: UNK UKN, UNK
  4. EXELON [Suspect]
     Dosage: 9.5MG/24
     Route: 062
     Dates: start: 20110410, end: 20110414
  5. MODOPAR [Suspect]
     Dosage: 125 MG, QID
     Route: 048
  6. IMOVANE [Suspect]
     Dosage: 1 DF, QD
     Route: 048
     Dates: start: 20110328
  7. ASPIRIN [Concomitant]
     Dosage: 75 MG, UNK
  8. LANTUS [Concomitant]
     Dosage: UNK UKN, UNK
  9. HUMALOG [Concomitant]
     Dosage: UNK UKN, UNK
  10. MEMANTINE HYDROCHLORIDE [Suspect]
     Dosage: 1 DF, BID
     Route: 048
     Dates: start: 20110420
  11. IMOVANE [Suspect]
     Dosage: 1 DF, QD
     Route: 048
     Dates: end: 20110316
  12. OROCAL D3 [Concomitant]
     Dosage: UNK UKN, UNK
     Dates: end: 20110325
  13. UVEDOSE [Concomitant]
     Dosage: UNK UKN, UNK
  14. EXELON [Suspect]
     Dosage: 9.5MG/24 HR, ONE PATCH PE RDAY
     Route: 062
     Dates: end: 20110406
  15. MEMANTINE HYDROCHLORIDE [Suspect]
     Dosage: 1 DF, BID
     Route: 048
     Dates: end: 20110406
  16. ATORVASTATIN [Concomitant]
     Dosage: 10 MG, UNK

REACTIONS (19)
  - CYTOLYTIC HEPATITIS [None]
  - ALANINE AMINOTRANSFERASE INCREASED [None]
  - CEREBRAL ATROPHY [None]
  - C-REACTIVE PROTEIN INCREASED [None]
  - DEHYDRATION [None]
  - URINARY RETENTION [None]
  - BLOOD POTASSIUM INCREASED [None]
  - SOMNOLENCE [None]
  - INFLAMMATION [None]
  - BLOOD SODIUM INCREASED [None]
  - APHASIA [None]
  - LIPASE INCREASED [None]
  - PANCREATITIS ACUTE [None]
  - VAGINAL INFECTION [None]
  - CULTURE URINE POSITIVE [None]
  - GENERAL PHYSICAL HEALTH DETERIORATION [None]
  - CREATININE RENAL CLEARANCE DECREASED [None]
  - RENAL FAILURE [None]
  - ASPARTATE AMINOTRANSFERASE INCREASED [None]
